FAERS Safety Report 16973919 (Version 4)
Quarter: 2020Q1

REPORT INFORMATION
  Report Type: Report from Study
  Country: None (occurrence: US)
  Receive Date: 20191030
  Receipt Date: 20200130
  Transmission Date: 20200409
  Serious: Yes (Hospitalization)
  Sender: FDA-Public Use
  Company Number: US-ABBVIE-19K-163-2977335-00

PATIENT
  Sex: Female

DRUGS (1)
  1. HUMIRA [Suspect]
     Active Substance: ADALIMUMAB
     Indication: RHEUMATOID ARTHRITIS
     Route: 058
     Dates: start: 20190122

REACTIONS (13)
  - Respiratory arrest [Unknown]
  - Joint swelling [Not Recovered/Not Resolved]
  - Musculoskeletal stiffness [Unknown]
  - Pain in extremity [Unknown]
  - Pain [Not Recovered/Not Resolved]
  - Influenza [Unknown]
  - Chronic obstructive pulmonary disease [Unknown]
  - Urinary tract infection [Unknown]
  - Discomfort [Not Recovered/Not Resolved]
  - Inflammatory pain [Unknown]
  - Peripheral swelling [Unknown]
  - Arthralgia [Not Recovered/Not Resolved]
  - Joint stiffness [Not Recovered/Not Resolved]

NARRATIVE: CASE EVENT DATE: 2019
